FAERS Safety Report 23169825 (Version 2)
Quarter: 2023Q4

REPORT INFORMATION
  Report Type: Spontaneous
  Country: US (occurrence: US)
  Receive Date: 20231110
  Receipt Date: 20231213
  Transmission Date: 20240110
  Serious: No
  Sender: FDA-Public Use
  Company Number: US-Blueprint Medicines Corporation-1665

PATIENT
  Sex: Female

DRUGS (2)
  1. AYVAKIT [Suspect]
     Active Substance: AVAPRITINIB
     Indication: Polycythaemia vera
     Route: 065
     Dates: start: 20230721
  2. AYVAKIT [Suspect]
     Active Substance: AVAPRITINIB
     Route: 065
     Dates: start: 20230721

REACTIONS (4)
  - Haematocrit increased [Unknown]
  - Red blood cell count increased [Unknown]
  - Tryptase [Unknown]
  - Off label use [Unknown]
